FAERS Safety Report 17166369 (Version 2)
Quarter: 2019Q4

REPORT INFORMATION
  Report Type: Spontaneous
  Country: SE (occurrence: SE)
  Receive Date: 20191217
  Receipt Date: 20191220
  Transmission Date: 20200122
  Serious: Yes (Other)
  Sender: FDA-Public Use
  Company Number: SE-BAYER-2019-226867

PATIENT
  Sex: Male

DRUGS (1)
  1. LEVONORGESTREL IUS [UNKNOWN] [Suspect]
     Active Substance: LEVONORGESTREL
     Indication: CONTRACEPTION
     Dosage: UNK
     Route: 015

REACTIONS (3)
  - Premature baby [None]
  - Foetal exposure during pregnancy [None]
  - Bronchopulmonary dysplasia [Not Recovered/Not Resolved]

NARRATIVE: CASE EVENT DATE: 2004
